FAERS Safety Report 23990882 (Version 1)
Quarter: 2024Q2

REPORT INFORMATION
  Report Type: Spontaneous
  Country: US (occurrence: US)
  Receive Date: 20240619
  Receipt Date: 20240619
  Transmission Date: 20240716
  Serious: No
  Sender: FDA-Public Use
  Company Number: US-E2BLSMVVAL-SPO/USA/24/0008526

PATIENT
  Age: 72 Year
  Sex: Male

DRUGS (1)
  1. NICOTINE TRANSDERMAL SYSTEM [Suspect]
     Active Substance: NICOTINE
     Indication: Ex-tobacco user
     Dates: start: 20240501

REACTIONS (1)
  - Abnormal dreams [Unknown]
